FAERS Safety Report 6795726-9 (Version None)
Quarter: 2010Q2

REPORT INFORMATION
  Report Type: 
  Country: None (occurrence: None)
  Receive Date: 20100625
  Receipt Date: 20100614
  Transmission Date: 20101027
  Serious: Yes (Hospitalization, Other)
  Sender: FDA-Public Use
  Company Number: GB-ELI_LILLY_AND_COMPANY-GB201004007969

PATIENT
  Sex: Female
  Weight: 100 kg

DRUGS (15)
  1. CYMBALTA [Suspect]
     Indication: DEPRESSION
     Dosage: 30 MG, DAILY (1/D)
     Route: 048
     Dates: start: 20100317, end: 20100318
  2. ANBESOL [Concomitant]
     Dosage: UNK, UNKNOWN
     Route: 065
  3. ACETAMINOPHEN AND CODEINE PHOSPHATE [Concomitant]
     Dosage: UNK, TWO TO BE TAKEN 3/D AS REQUIRED
     Route: 065
  4. DIAZEPAM [Concomitant]
     Indication: ANXIETY
     Dosage: 5 MG, UNKNOWN
     Route: 065
  5. E45 ITCH RELIEF [Concomitant]
     Dosage: UNK, UNKNOWN
     Route: 061
  6. GLUCOSAMINE SULPHATE [Concomitant]
     Dosage: 750 MG, UNKNOWN
     Route: 048
  7. HYPROMELLOSE [Concomitant]
     Dosage: UNK, UNKNOWN
     Route: 065
  8. IBUPROFEN [Concomitant]
     Dosage: 200 MG, 3/D
     Route: 048
  9. MEBEVERINE HYDROCHLORIDE [Concomitant]
     Indication: IRRITABLE BOWEL SYNDROME
     Dosage: 135 MG, UNKNOWN
     Route: 048
  10. OMEPRAZOLE [Concomitant]
     Indication: DYSPEPSIA
     Dosage: 20 MEQ, UNKNOWN
     Route: 048
  11. SOTALOL HCL [Concomitant]
     Indication: SUPRAVENTRICULAR TACHYCARDIA
     Dosage: UNK, 1/2 TABLET TWICE A DAY
     Route: 048
  12. STREPSILS [Concomitant]
     Dosage: UNK, UNKNOWN
     Route: 048
  13. TIMODINE [Concomitant]
     Dosage: UNK, UNKNOWN
     Route: 061
  14. TRANDOLAPRIL [Concomitant]
     Indication: HYPERTENSION
     Dosage: 4 MG, UNKNOWN
     Route: 048
  15. ZOPICLONE [Concomitant]
     Indication: INSOMNIA
     Dosage: 7.5 MG, UNKNOWN
     Route: 048

REACTIONS (4)
  - ANXIETY [None]
  - MENTAL DISORDER [None]
  - SUICIDAL IDEATION [None]
  - SUICIDE ATTEMPT [None]
